FAERS Safety Report 12461483 (Version 4)
Quarter: 2016Q4

REPORT INFORMATION
  Report Type: Spontaneous
  Country: US (occurrence: US)
  Receive Date: 20160613
  Receipt Date: 20161130
  Transmission Date: 20170207
  Serious: Yes (Hospitalization, Other)
  Sender: FDA-Public Use
  Company Number: US-009507513-1201USA00760

PATIENT
  Sex: Female

DRUGS (2)
  1. FOSAMAX [Suspect]
     Active Substance: ALENDRONATE SODIUM
     Indication: OSTEOPOROSIS
     Dosage: 70 MG, UNK
     Route: 048
     Dates: start: 200609, end: 201106
  2. NEXIUM [Concomitant]
     Active Substance: ESOMEPRAZOLE MAGNESIUM
     Indication: GASTROOESOPHAGEAL REFLUX DISEASE
     Dosage: UNK, UNKNOWN
     Route: 065
     Dates: start: 200912

REACTIONS (24)
  - Restless legs syndrome [Unknown]
  - Coronary artery disease [Unknown]
  - Cardiac failure congestive [Unknown]
  - Parotidectomy [Unknown]
  - Dyspnoea [Unknown]
  - Arthralgia [Unknown]
  - Hypertension [Unknown]
  - Osteoporosis [Unknown]
  - Appendicectomy [Unknown]
  - Scoliosis [Unknown]
  - Seizure [Unknown]
  - Osteoarthritis [Unknown]
  - Sleep apnoea syndrome [Unknown]
  - Rotator cuff syndrome [Unknown]
  - Arthralgia [Unknown]
  - Arrhythmia [Unknown]
  - Joint swelling [Unknown]
  - Radicular pain [Unknown]
  - Femoral neck fracture [Recovered/Resolved]
  - Rhinitis allergic [Unknown]
  - Dyslipidaemia [Unknown]
  - Blood calcium increased [Unknown]
  - Arthralgia [Unknown]
  - Drug ineffective [Unknown]

NARRATIVE: CASE EVENT DATE: 20091212
